FAERS Safety Report 9667621 (Version 1)
Quarter: 2013Q4

REPORT INFORMATION
  Report Type: Spontaneous
  Country: FR (occurrence: FR)
  Receive Date: 20131104
  Receipt Date: 20131104
  Transmission Date: 20140711
  Serious: Yes (Other)
  Sender: FDA-Public Use
  Company Number: FR-PFIZER INC-2013309646

PATIENT
  Age: 28 Year
  Sex: Female

DRUGS (2)
  1. CYTOTEC [Suspect]
     Indication: LABOUR INDUCTION
     Dosage: 50 UG SIX HOURS APART
     Route: 067
     Dates: start: 20110505, end: 20110505
  2. SYNTOCINON [Suspect]
     Indication: LABOUR INDUCTION
     Dosage: UNK
     Route: 041
     Dates: start: 20110505, end: 20110505

REACTIONS (3)
  - Off label use [Recovered/Resolved]
  - Uterine hypertonus [Recovered/Resolved]
  - Labour pain [Recovered/Resolved]
